FAERS Safety Report 18050126 (Version 1)
Quarter: 2020Q3

REPORT INFORMATION
  Report Type: Spontaneous
  Country: GB (occurrence: GB)
  Receive Date: 20200721
  Receipt Date: 20200721
  Transmission Date: 20201103
  Serious: Yes (Hospitalization)
  Sender: FDA-Public Use
  Company Number: NVSC2020GB199617

PATIENT
  Age: 2 Month
  Sex: Male

DRUGS (3)
  1. CEFTRIAXONE SODIUM. [Suspect]
     Active Substance: CEFTRIAXONE SODIUM
     Indication: MENINGITIS VIRAL
     Dosage: UNK
     Route: 065
     Dates: start: 2010
  2. PREVENAR [Suspect]
     Active Substance: PNEUMOCOCCAL 7-VALENT CONJUGATE VACCINE (DIPHTHERIA CRM197 PROTEIN)
     Indication: IMMUNISATION
     Dosage: 1 DF
     Route: 065
     Dates: start: 20100416, end: 20100416
  3. AMOXICILLIN. [Suspect]
     Active Substance: AMOXICILLIN
     Indication: MENINGITIS VIRAL
     Dosage: UNK
     Route: 065
     Dates: start: 2010

REACTIONS (6)
  - Diarrhoea [Unknown]
  - Frequent bowel movements [Unknown]
  - Colitis [Unknown]
  - Mucous stools [Unknown]
  - Haematochezia [Recovering/Resolving]
  - Condition aggravated [Unknown]

NARRATIVE: CASE EVENT DATE: 20100413
